FAERS Safety Report 15699809 (Version 1)
Quarter: 2018Q4

REPORT INFORMATION
  Report Type: Spontaneous
  Country: US (occurrence: US)
  Receive Date: 20181207
  Receipt Date: 20181207
  Transmission Date: 20190205
  Serious: Yes (Life-Threatening, Other)
  Sender: FDA-Public Use
  Company Number: None

PATIENT
  Age: 19 Year
  Sex: Female
  Weight: 85.5 kg

DRUGS (1)
  1. PROZAC [Suspect]
     Active Substance: FLUOXETINE HYDROCHLORIDE
     Indication: DEPRESSION
     Dosage: ?          QUANTITY:1 CAPSULE(S);?
     Route: 048
     Dates: start: 20161015, end: 20181115

REACTIONS (4)
  - Serotonin syndrome [None]
  - Tremor [None]
  - Hyperhidrosis [None]
  - Chills [None]

NARRATIVE: CASE EVENT DATE: 20181102
